FAERS Safety Report 4342664-7 (Version None)
Quarter: 2004Q2

REPORT INFORMATION
  Report Type: 
  Country: None (occurrence: None)
  Receive Date: 20040420
  Receipt Date: 20040420
  Transmission Date: 20050107
  Serious: No
  Sender: FDA-Public Use
  Company Number: None

PATIENT
  Sex: Male

DRUGS (2)
  1. ATAZANAVIR [Suspect]
     Indication: HIV INFECTION
     Dosage: 400 MG QD ORAL
     Route: 048
     Dates: start: 20030730, end: 20040308
  2. TAXOTERE [Suspect]
     Indication: METASTATIC NEOPLASM
     Dosage: 135 MG Q MONTH IV
     Route: 042
     Dates: start: 20031125, end: 20040308

REACTIONS (5)
  - PHOTOSENSITIVITY REACTION [None]
  - RASH [None]
  - SKIN DESQUAMATION [None]
  - SKIN ULCER [None]
  - STOMATITIS [None]
